FAERS Safety Report 5664822-1 (Version None)
Quarter: 2008Q1

REPORT INFORMATION
  Report Type: 
  Country: None (occurrence: None)
  Receive Date: 20080314
  Receipt Date: 20080215
  Transmission Date: 20080703
  Serious: Yes (Other)
  Sender: FDA-Public Use
  Company Number: JP-ROCHE-525876

PATIENT
  Age: 70 Year
  Sex: Male
  Weight: 53 kg

DRUGS (6)
  1. COPEGUS [Suspect]
     Dosage: DIVIDED INTO TWO DOSES.
     Route: 048
     Dates: start: 20070706, end: 20070927
  2. COPEGUS [Suspect]
     Dosage: DOSE DECREASED.
     Route: 048
     Dates: start: 20070928
  3. PEGASYS [Suspect]
     Dosage: DOSE DECREASED.
     Route: 058
     Dates: start: 20070706, end: 20071004
  4. PEGASYS [Suspect]
     Route: 058
     Dates: start: 20071011
  5. URSO 250 [Concomitant]
     Route: 048
     Dates: start: 19920101
  6. GLYCYRON [Concomitant]
     Route: 048
     Dates: start: 19920101, end: 20071011

REACTIONS (1)
  - LYMPHADENOPATHY [None]
